FAERS Safety Report 15926172 (Version 1)
Quarter: 2019Q1

REPORT INFORMATION
  Report Type: Spontaneous
  Country: US (occurrence: US)
  Receive Date: 20190206
  Receipt Date: 20190206
  Transmission Date: 20190417
  Serious: Yes (Hospitalization)
  Sender: FDA-Public Use
  Company Number: None

PATIENT
  Age: 49 Year
  Sex: Male

DRUGS (21)
  1. PRAVASTATIN. [Concomitant]
     Active Substance: PRAVASTATIN
  2. DAPSONE. [Concomitant]
     Active Substance: DAPSONE
  3. CIPROFLOXACINE [Concomitant]
     Active Substance: CIPROFLOXACIN
  4. MYCOPHENOLIC [Concomitant]
     Active Substance: MYCOPHENOLIC ACID
  5. ROPINIROLE. [Concomitant]
     Active Substance: ROPINIROLE
  6. ENVARSUS XR [Concomitant]
     Active Substance: TACROLIMUS
  7. SILDENAFIL. [Suspect]
     Active Substance: SILDENAFIL
     Indication: PULMONARY ARTERIAL HYPERTENSION
     Route: 048
     Dates: start: 20180928
  8. ENVARSUS XR [Concomitant]
     Active Substance: TACROLIMUS
  9. FLUDROCORT [Concomitant]
  10. ESOMEPRAZOLE. [Concomitant]
     Active Substance: ESOMEPRAZOLE MAGNESIUM
  11. PREDNISONE. [Concomitant]
     Active Substance: PREDNISONE
  12. TRAZODONE [Concomitant]
     Active Substance: TRAZODONE HYDROCHLORIDE
  13. MAGNESIUM OX [Concomitant]
  14. SODIUM BICARBONATE. [Concomitant]
     Active Substance: SODIUM BICARBONATE
  15. TAMSULOSIN [Concomitant]
     Active Substance: TAMSULOSIN
  16. VITAMIN B12 [Concomitant]
     Active Substance: CYANOCOBALAMIN
  17. CLONAZEPAM. [Concomitant]
     Active Substance: CLONAZEPAM
  18. FUROSEMIDE. [Concomitant]
     Active Substance: FUROSEMIDE
  19. HYDRALAZINE [Concomitant]
     Active Substance: HYDRALAZINE HYDROCHLORIDE
  20. METOPROLOL. [Concomitant]
     Active Substance: METOPROLOL
  21. BUPROPIN [Concomitant]
     Active Substance: BUPROPION

REACTIONS (1)
  - Hospitalisation [None]

NARRATIVE: CASE EVENT DATE: 20190202
